FAERS Safety Report 13830240 (Version 3)
Quarter: 2017Q4

REPORT INFORMATION
  Report Type: Report from Study
  Country: US (occurrence: US)
  Receive Date: 20170803
  Receipt Date: 20171016
  Transmission Date: 20180320
  Serious: Yes (Other)
  Sender: FDA-Public Use
  Company Number: US-TAIHO ONCOLOGY INC-EU-2017-01064

PATIENT
  Age: 78 Year
  Sex: Male
  Weight: 87.17 kg

DRUGS (6)
  1. LONSURF [Suspect]
     Active Substance: TIPIRACIL HYDROCHLORIDE\TRIFLURIDINE
     Indication: COLON CANCER METASTATIC
     Route: 048
     Dates: start: 201702, end: 20170828
  2. METFORMIN [Concomitant]
     Active Substance: METFORMIN HYDROCHLORIDE
     Dosage: NI
  3. GEMFIBROZIL. [Concomitant]
     Active Substance: GEMFIBROZIL
     Dosage: NI
  4. NOVOLOG [Concomitant]
     Active Substance: INSULIN ASPART
     Dosage: NI
  5. LANTUS [Concomitant]
     Active Substance: INSULIN GLARGINE
     Dosage: NI
  6. ATORVASTATIN [Concomitant]
     Active Substance: ATORVASTATIN
     Dosage: NI

REACTIONS (8)
  - Neutrophil count decreased [Unknown]
  - Red blood cell count decreased [Unknown]
  - Disease progression [Unknown]
  - Platelet count decreased [Recovering/Resolving]
  - Haematocrit decreased [Recovering/Resolving]
  - White blood cell count decreased [Recovering/Resolving]
  - Haemoglobin decreased [Recovering/Resolving]
  - Transfusion [Recovered/Resolved]

NARRATIVE: CASE EVENT DATE: 20170620
